FAERS Safety Report 8044872-0 (Version None)
Quarter: 2012Q1

REPORT INFORMATION
  Report Type: 
  Country: None (occurrence: None)
  Receive Date: 20120113
  Receipt Date: 20120111
  Transmission Date: 20120608
  Serious: Yes (Other)
  Sender: FDA-Public Use
  Company Number: US-JNJFOC-20120104196

PATIENT
  Sex: Female

DRUGS (2)
  1. LISTERINE ORIGINAL [Suspect]
     Indication: DENTAL DISORDER PROPHYLAXIS
     Dosage: CAP-SIZED AMOUNT
     Route: 048
     Dates: start: 20110101
  2. ALL OTHER NON-THERAPEUTIC PRODUCTS [Concomitant]
     Indication: ASTHENIA
     Dosage: DAILY BASIS
     Route: 065

REACTIONS (3)
  - ORAL MUCOSAL EXFOLIATION [None]
  - WRONG TECHNIQUE IN DRUG USAGE PROCESS [None]
  - THERMAL BURN [None]
